FAERS Safety Report 17867728 (Version 4)
Quarter: 2020Q3

REPORT INFORMATION
  Report Type: Report from Study
  Country: US (occurrence: US)
  Receive Date: 20200605
  Receipt Date: 20200730
  Transmission Date: 20201103
  Serious: Yes (Hospitalization)
  Sender: FDA-Public Use
  Company Number: US-ACTELION-A-US2020-202313

PATIENT
  Age: 72 Year
  Sex: Male
  Weight: 90.7 kg

DRUGS (9)
  1. SILDENAFIL CITRATE. [Concomitant]
     Active Substance: SILDENAFIL CITRATE
  2. TORSEMIDE. [Concomitant]
     Active Substance: TORSEMIDE
  3. XIFAXAN [Concomitant]
     Active Substance: RIFAXIMIN
  4. NADOLOL. [Concomitant]
     Active Substance: NADOLOL
  5. OMEPRAZOLE. [Concomitant]
     Active Substance: OMEPRAZOLE
  6. OPSUMIT [Suspect]
     Active Substance: MACITENTAN
     Indication: PULMONARY HYPERTENSION
     Dosage: 10 MG, QD
     Route: 048
     Dates: start: 20200208
  7. TYLENOL [Concomitant]
     Active Substance: ACETAMINOPHEN
  8. METFORMIN [Concomitant]
     Active Substance: METFORMIN HYDROCHLORIDE
  9. MULTIVITAMINS [VITAMINS NOS] [Concomitant]
     Active Substance: VITAMINS

REACTIONS (10)
  - Dysstasia [Unknown]
  - Hepatic encephalopathy [Unknown]
  - Hepatitis [Unknown]
  - Peripheral swelling [Not Recovered/Not Resolved]
  - Rash [Not Recovered/Not Resolved]
  - Liver disorder [Unknown]
  - Confusional state [Unknown]
  - Pain [Recovered/Resolved]
  - Weight increased [Not Recovered/Not Resolved]
  - Ammonia increased [Unknown]

NARRATIVE: CASE EVENT DATE: 202002
